FAERS Safety Report 7722952-4 (Version None)
Quarter: 2011Q3

REPORT INFORMATION
  Report Type: 
  Country: None (occurrence: None)
  Receive Date: 20110825
  Receipt Date: 20110818
  Transmission Date: 20111222
  Serious: Yes (Life-Threatening, Hospitalization)
  Sender: FDA-Public Use
  Company Number: 15984768

PATIENT
  Age: 81 Year
  Sex: Male

DRUGS (12)
  1. NEBIVOLOL HCL [Concomitant]
  2. COUMADIN [Suspect]
     Dosage: ORAL
     Route: 048
     Dates: start: 20101001
  3. ESCITALOPRAM [Concomitant]
  4. DAFALGAN (ACETAMINOPHEN) [Concomitant]
  5. PLAVIX [Suspect]
  6. PRAVASTATIN [Concomitant]
  7. ALLOPURINOL [Concomitant]
  8. NEXIUM [Concomitant]
  9. INSULATARD NPH HUMAN [Concomitant]
  10. IKOREL (NICORANDIL) [Concomitant]
  11. LASIX [Concomitant]
  12. LYRICA [Concomitant]

REACTIONS (3)
  - GASTROINTESTINAL HAEMORRHAGE [None]
  - HAEMOGLOBIN DECREASED [None]
  - RED BLOOD CELL COUNT DECREASED [None]
